FAERS Safety Report 18132887 (Version 8)
Quarter: 2023Q2

REPORT INFORMATION
  Report Type: Other
  Country: JP (occurrence: JP)
  Receive Date: 20200811
  Receipt Date: 20230412
  Transmission Date: 20230721
  Serious: Yes (Life-Threatening, Other)
  Sender: FDA-Public Use
  Company Number: JP-CHUGAI-A2020036566ROCHE

PATIENT
  Age: 42 Year
  Sex: Female
  Weight: 62 kg

DRUGS (22)
  1. ACTEMRA [Suspect]
     Active Substance: TOCILIZUMAB
     Indication: Cytokine release syndrome
     Route: 041
     Dates: start: 20200313
  2. KYMRIAH [Suspect]
     Active Substance: TISAGENLECLEUCEL
     Indication: Diffuse large B-cell lymphoma
     Dosage: 2.1X10E8 CAR-POSITIVE VIABLE T-CELLS, 0.7X10E9 TOTAL VIABLE CELLS, 83.4% CELL VIABILITY
     Route: 041
     Dates: start: 20200309, end: 20200309
  3. RITUXAN [Suspect]
     Active Substance: RITUXIMAB
     Indication: Diffuse large B-cell lymphoma
     Dosage: DOSAGE IS UNCERTAIN.
     Route: 041
     Dates: start: 20200116
  4. DEXAMETHASONE [Suspect]
     Active Substance: DEXAMETHASONE
     Indication: Diffuse large B-cell lymphoma
     Route: 065
  5. RITUXAN [Concomitant]
     Active Substance: RITUXIMAB
     Indication: Diffuse large B-cell lymphoma recurrent
     Dosage: DOSAGE IS UNCERTAIN.
     Route: 041
     Dates: start: 202001
  6. RITUXAN [Concomitant]
     Active Substance: RITUXIMAB
     Indication: Chemotherapy
  7. CYCLOPHOSPHAMIDE [Concomitant]
     Active Substance: CYCLOPHOSPHAMIDE
     Indication: Diffuse large B-cell lymphoma recurrent
     Dosage: DOSAGE IS UNCERTAIN.
     Route: 041
     Dates: start: 202001
  8. DOXORUBICIN HYDROCHLORIDE [Concomitant]
     Active Substance: DOXORUBICIN HYDROCHLORIDE
     Indication: Diffuse large B-cell lymphoma recurrent
     Dosage: DOSAGE IS UNCERTAIN.
     Route: 041
     Dates: start: 202001
  9. ONCOVIN [Concomitant]
     Active Substance: VINCRISTINE SULFATE
     Dosage: DOSAGE IS UNCERTAIN.
     Route: 041
     Dates: start: 202001
  10. METHOTREXATE [Concomitant]
     Active Substance: METHOTREXATE
     Indication: Diffuse large B-cell lymphoma recurrent
     Dosage: DOSAGE IS UNCERTAIN.
     Route: 065
     Dates: start: 202001
  11. CEFEPIME HYDROCHLORIDE [Concomitant]
     Active Substance: CEFEPIME HYDROCHLORIDE
     Dosage: DOSAGE IS UNCERTAIN.
     Route: 065
  12. METHYLPREDNISOLONE [Concomitant]
     Active Substance: METHYLPREDNISOLONE
     Dosage: DOSAGE IS UNCERTAIN.
     Route: 065
  13. MEROPENEM [Concomitant]
     Active Substance: MEROPENEM
     Dosage: DOSAGE IS UNCERTAIN.
     Route: 065
  14. VANCOMYCIN HYDROCHLORIDE [Concomitant]
     Active Substance: VANCOMYCIN HYDROCHLORIDE
     Dosage: DOSAGE IS UNCERTAIN.
     Route: 065
  15. FLUDARABINE PHOSPHATE [Concomitant]
     Active Substance: FLUDARABINE PHOSPHATE
     Indication: Diffuse large B-cell lymphoma recurrent
     Dosage: DOSAGE IS UNCERTAIN.
     Route: 065
  16. FILGRASTIM [Concomitant]
     Active Substance: FILGRASTIM
     Dosage: DOSAGE IS UNCERTAIN.
     Route: 065
  17. CYTARABINE [Concomitant]
     Active Substance: CYTARABINE
     Indication: Diffuse large B-cell lymphoma recurrent
     Dosage: UNK
     Route: 065
  18. CYTARABINE [Concomitant]
     Active Substance: CYTARABINE
     Indication: Chemotherapy
  19. VINCRISTINE SULFATE [Concomitant]
     Active Substance: VINCRISTINE SULFATE
     Indication: Diffuse large B-cell lymphoma recurrent
     Dosage: UNK
     Route: 065
  20. RANIMUSTINE [Concomitant]
     Active Substance: RANIMUSTINE
     Indication: Chemotherapy
     Dosage: UNK
     Route: 065
  21. ETOPOSIDE [Concomitant]
     Active Substance: ETOPOSIDE
     Indication: Chemotherapy
     Dosage: UNK
     Route: 065
  22. MELPHALAN [Concomitant]
     Active Substance: MELPHALAN
     Indication: Chemotherapy
     Dosage: UNK
     Route: 065

REACTIONS (8)
  - Pancytopenia [Unknown]
  - Bone marrow failure [Not Recovered/Not Resolved]
  - Diffuse large B-cell lymphoma stage III [Recovered/Resolved]
  - Malignant neoplasm progression [Recovered/Resolved]
  - Peripheral sensorimotor neuropathy [Recovering/Resolving]
  - Immune effector cell-associated neurotoxicity syndrome [Recovering/Resolving]
  - Cytokine release syndrome [Recovered/Resolved]
  - Drug ineffective [Unknown]

NARRATIVE: CASE EVENT DATE: 20200301
